FAERS Safety Report 23157658 (Version 2)
Quarter: 2023Q4

REPORT INFORMATION
  Report Type: Spontaneous
  Country: PE (occurrence: PE)
  Receive Date: 20231108
  Receipt Date: 20231228
  Transmission Date: 20240110
  Serious: Yes (Other)
  Sender: FDA-Public Use
  Company Number: PE-PFIZER INC-PV202300087560

PATIENT
  Age: 41 Year
  Sex: Female

DRUGS (1)
  1. ENBREL [Suspect]
     Active Substance: ETANERCEPT
     Indication: Product used for unknown indication
     Dosage: UNK
     Route: 058
     Dates: end: 202303

REACTIONS (6)
  - Renal disorder [Unknown]
  - Gastrointestinal disorder [Unknown]
  - Vein disorder [Unknown]
  - Feeling abnormal [Unknown]
  - Pain [Unknown]
  - Liver disorder [Unknown]

NARRATIVE: CASE EVENT DATE: 20230101
